FAERS Safety Report 7564893-1 (Version None)
Quarter: 2011Q2

REPORT INFORMATION
  Report Type: 
  Country: None (occurrence: None)
  Receive Date: 20110622
  Receipt Date: 20110202
  Transmission Date: 20111010
  Serious: Yes (Death)
  Sender: FDA-Public Use
  Company Number: US-MYLANLABS-2011S1002369

PATIENT
  Age: 84 Year
  Sex: Female

DRUGS (8)
  1. CARBIDOPA + LEVODOPA [Concomitant]
     Dosage: CARBIDOPA,25MG PLUS LEVODOPA, 125MG
  2. NORVASC [Concomitant]
  3. PLAVIX [Concomitant]
  4. LASIX [Concomitant]
  5. ZEMPLAR [Concomitant]
  6. ZOLOFT [Concomitant]
  7. CLOZAPINE [Suspect]
     Route: 048
  8. METOPROLOL TARTRATE [Concomitant]
     Dosage: METOPROLOL, 25MG X 2

REACTIONS (1)
  - DEATH [None]
